FAERS Safety Report 9011682 (Version 1)
Quarter: 2013Q1

REPORT INFORMATION
  Report Type: Spontaneous
  Country: US (occurrence: US)
  Receive Date: 20130107
  Receipt Date: 20130107
  Transmission Date: 20140127
  Serious: Yes (Death)
  Sender: FDA-Public Use
  Company Number: US-PFIZER INC-2013004170

PATIENT
  Age: 39 Year
  Sex: Male

DRUGS (5)
  1. ALPRAZOLAM [Suspect]
     Dosage: UNK
     Route: 048
  2. CARISOPRODOL [Suspect]
     Dosage: UNK
     Route: 048
  3. OXYMORPHONE [Suspect]
     Dosage: UNK
     Route: 048
  4. MEPROBAMATE [Suspect]
     Dosage: UNK
     Route: 048
  5. HYDROCODONE [Suspect]
     Dosage: UNK
     Route: 048

REACTIONS (1)
  - Drug abuse [Fatal]
